FAERS Safety Report 7041328-9 (Version None)
Quarter: 2010Q4

REPORT INFORMATION
  Report Type: 
  Country: None (occurrence: None)
  Receive Date: 20101013
  Receipt Date: 20101005
  Transmission Date: 20110411
  Serious: Yes (Hospitalization)
  Sender: FDA-Public Use
  Company Number: FR-SANOFI-AVENTIS-2010SA059544

PATIENT
  Age: 70 Year
  Sex: Female

DRUGS (16)
  1. LASIX [Suspect]
     Route: 048
     Dates: start: 20100120
  2. CYMBALTA [Suspect]
     Indication: DEPRESSION
     Route: 048
     Dates: start: 20100120, end: 20100124
  3. IKOREL [Concomitant]
     Indication: CARDIOMYOPATHY
     Dosage: DOSE:1 UNIT(S)
     Route: 048
  4. PLAVIX [Concomitant]
     Indication: THROMBOSIS PROPHYLAXIS
     Route: 048
  5. CELEBREX [Concomitant]
     Dosage: DOSE:1 UNIT(S)
     Route: 048
  6. INSULIN [Concomitant]
     Route: 058
  7. LEXOMIL [Concomitant]
     Indication: INSOMNIA
     Dosage: DOSE:1 UNIT(S)
     Route: 048
  8. METFORMIN [Concomitant]
     Dosage: DOSE:1 UNIT(S)
     Route: 048
  9. LYRICA [Concomitant]
     Dosage: DOSE:1 UNIT(S)
     Route: 048
  10. ESOMEPRAZOLE [Concomitant]
     Dosage: DOSE:1 UNIT(S)
     Route: 048
  11. ACETYLSALICYLIC ACID/PRAVASTATIN SODIUM [Concomitant]
     Dosage: DOSE:1 UNIT(S)
     Route: 048
  12. CORONARY VASODILATORS [Concomitant]
     Indication: ANGINA PECTORIS
     Dosage: DOSE:1 UNIT(S)
     Route: 048
  13. IKOREL [Concomitant]
     Indication: ANGINA PECTORIS
     Route: 048
  14. AMLODIPINE [Concomitant]
     Indication: ARRHYTHMIA
     Dosage: DOSE:1 UNIT(S)
     Route: 048
  15. RAMIPRIL [Concomitant]
     Dosage: DOSE:1 UNIT(S)
     Route: 048
  16. ATENOLOL [Concomitant]
     Dosage: DOSE:1 UNIT(S)
     Route: 048

REACTIONS (3)
  - ASTHENIA [None]
  - FALL [None]
  - GAIT DISTURBANCE [None]
